FAERS Safety Report 10253076 (Version 2)
Quarter: 2014Q2

REPORT INFORMATION
  Report Type: Spontaneous
  Country: FR (occurrence: FR)
  Receive Date: 20140623
  Receipt Date: 20140623
  Transmission Date: 20141212
  Serious: Yes (Hospitalization)
  Sender: FDA-Public Use
  Company Number: FR-SA-2014SA018521

PATIENT
  Age: 90 Year
  Sex: Female

DRUGS (6)
  1. DOLIPRANE [Suspect]
     Indication: PRODUCT USED FOR UNKNOWN INDICATION
     Dosage: TABLET OR CAPSULE
     Route: 048
     Dates: end: 20130915
  2. FUROSEMIDE [Suspect]
     Indication: PRODUCT USED FOR UNKNOWN INDICATION
     Route: 048
     Dates: end: 20130829
  3. ALDACTONE [Suspect]
     Indication: HYPERTENSION
     Route: 048
     Dates: start: 2003, end: 20130829
  4. ZYMA [Concomitant]
     Dosage: FORM: SOLUTION?FREQ: EVERY 14 DAYS
     Route: 048
     Dates: start: 20130827, end: 20130915
  5. CEFTRIAXONE [Concomitant]
     Route: 042
     Dates: start: 20130827, end: 20130915
  6. LOVENOX [Concomitant]
     Route: 058
     Dates: start: 20130827, end: 20130915

REACTIONS (1)
  - Hepatocellular injury [Recovering/Resolving]
